FAERS Safety Report 5802871-0 (Version None)
Quarter: 2008Q3

REPORT INFORMATION
  Report Type: 
  Country: None (occurrence: None)
  Receive Date: 20080708
  Receipt Date: 20080630
  Transmission Date: 20090109
  Serious: Yes (Hospitalization)
  Sender: FDA-Public Use
  Company Number: FR-EISAI MEDICAL RESEARCH-E2090-00480-SPO-FR

PATIENT
  Age: 35 Year
  Sex: Male
  Weight: 75 kg

DRUGS (3)
  1. ZONEGRAN [Suspect]
     Indication: EPILEPSY
     Route: 048
     Dates: start: 20080101, end: 20080101
  2. ZARONTIN [Concomitant]
     Indication: EPILEPSY
     Route: 048
     Dates: start: 20050101
  3. ANTALGIC DRUGS [Concomitant]

REACTIONS (1)
  - RENAL COLIC [None]
